FAERS Safety Report 25237622 (Version 4)
Quarter: 2025Q4

REPORT INFORMATION
  Report Type: Spontaneous
  Country: EU (occurrence: EU)
  Receive Date: 20250425
  Receipt Date: 20251111
  Transmission Date: 20260118
  Serious: No
  Sender: ASTELLAS
  Company Number: EU-ASTELLAS-2025-AER-021909

PATIENT
  Sex: Female

DRUGS (2)
  1. VEOZAH [Suspect]
     Active Substance: FEZOLINETANT
     Indication: Menopausal symptoms
     Route: 065
     Dates: end: 2025
  2. VEOZAH [Suspect]
     Active Substance: FEZOLINETANT
     Dosage: RESTARTED
     Route: 065
     Dates: start: 2025, end: 2025

REACTIONS (5)
  - Aspartate aminotransferase increased [Recovered/Resolved]
  - Alanine aminotransferase increased [Recovered/Resolved]
  - Gamma-glutamyltransferase increased [Recovering/Resolving]
  - Low density lipoprotein increased [Unknown]
  - Chromaturia [Unknown]

NARRATIVE: CASE EVENT DATE: 20250101
